FAERS Safety Report 21071648 (Version 1)
Quarter: 2022Q3

REPORT INFORMATION
  Report Type: Spontaneous
  Country: US (occurrence: US)
  Receive Date: 20220712
  Receipt Date: 20220712
  Transmission Date: 20221026
  Serious: Yes (Other)
  Sender: FDA-Public Use
  Company Number: US-PFIZER INC-202200722038

PATIENT
  Age: 65 Year
  Sex: Female
  Weight: 82.993 kg

DRUGS (1)
  1. XELJANZ [Suspect]
     Active Substance: TOFACITINIB CITRATE
     Dosage: 50 MG, 2X/DAY

REACTIONS (6)
  - Leukopenia [Unknown]
  - Pain [Unknown]
  - Swelling [Recovering/Resolving]
  - White blood cell count decreased [Unknown]
  - Blood sodium decreased [Unknown]
  - Prescribed overdose [Unknown]
